FAERS Safety Report 16883520 (Version 2)
Quarter: 2019Q4

REPORT INFORMATION
  Report Type: Spontaneous
  Country: US (occurrence: US)
  Receive Date: 20191004
  Receipt Date: 20191022
  Transmission Date: 20200122
  Serious: Yes (Other)
  Sender: FDA-Public Use
  Company Number: US-MERZ PHARMACEUTICALS GMBH-19-04082

PATIENT
  Age: 38 Year
  Sex: Female

DRUGS (7)
  1. XEOMIN [Suspect]
     Active Substance: INCOBOTULINUMTOXINA
     Indication: SKIN WRINKLING
  2. XEOMIN [Suspect]
     Active Substance: INCOBOTULINUMTOXINA
     Indication: SKIN WRINKLING
     Route: 030
     Dates: start: 20190826, end: 20190826
  3. LAMICTAL [Concomitant]
     Active Substance: LAMOTRIGINE
     Dosage: 2 DOSAGE FORMS
  4. IBUPROFEN. [Concomitant]
     Active Substance: IBUPROFEN
  5. ERGOCALCIFEROL. [Concomitant]
     Active Substance: ERGOCALCIFEROL
  6. XEOMIN [Suspect]
     Active Substance: INCOBOTULINUMTOXINA
     Indication: SKIN COSMETIC PROCEDURE
  7. BOTOX [Concomitant]
     Active Substance: ONABOTULINUMTOXINA
     Indication: TEMPOROMANDIBULAR JOINT SYNDROME
     Dates: start: 201901, end: 201901

REACTIONS (5)
  - Seizure [Unknown]
  - Vision blurred [Not Recovered/Not Resolved]
  - Dysgeusia [Unknown]
  - Dysphagia [Unknown]
  - Migraine [Not Recovered/Not Resolved]

NARRATIVE: CASE EVENT DATE: 2019
